FAERS Safety Report 19957814 (Version 2)
Quarter: 2021Q4

REPORT INFORMATION
  Report Type: Spontaneous
  Country: US (occurrence: US)
  Receive Date: 20211015
  Receipt Date: 20211217
  Transmission Date: 20220304
  Serious: Yes (Hospitalization)
  Sender: FDA-Public Use
  Company Number: US-BIOVITRUM-2021US9186

PATIENT
  Sex: Female

DRUGS (2)
  1. SYNAGIS [Suspect]
     Active Substance: PALIVIZUMAB
     Indication: Premature baby
     Route: 030
     Dates: start: 20211008
  2. SYNAGIS [Suspect]
     Active Substance: PALIVIZUMAB
     Indication: Antiviral prophylaxis
     Dosage: (50MG/0.5ML), (100MG/ML)
     Route: 030
     Dates: start: 202110, end: 202111

REACTIONS (2)
  - Rhinovirus infection [Unknown]
  - Respiration abnormal [Unknown]
